FAERS Safety Report 5753448-7 (Version None)
Quarter: 2008Q2

REPORT INFORMATION
  Report Type: 
  Country: None (occurrence: None)
  Receive Date: 20080530
  Receipt Date: 20080520
  Transmission Date: 20081010
  Serious: Yes (Hospitalization)
  Sender: FDA-Public Use
  Company Number: CA-JNJFOC-20080204333

PATIENT
  Sex: Male
  Weight: 74 kg

DRUGS (10)
  1. REMICADE [Suspect]
     Route: 042
  2. REMICADE [Suspect]
     Route: 042
  3. REMICADE [Suspect]
     Indication: CROHN'S DISEASE
     Route: 042
  4. APO-FOLIC [Concomitant]
  5. PANTOPRAZOLE SODIUM [Concomitant]
  6. APO PRIMIDONE [Concomitant]
  7. DILANTIN [Concomitant]
  8. CARBAMAZEPINE [Concomitant]
  9. EURO-CAL D [Concomitant]
  10. METHOTREXATE [Concomitant]
     Dosage: 2ML,25MG/ML,0.6ML
     Route: 058

REACTIONS (1)
  - INTESTINAL OBSTRUCTION [None]
